FAERS Safety Report 8879181 (Version 1)
Quarter: 2012Q4

REPORT INFORMATION
  Report Type: Spontaneous
  Country: TR (occurrence: None)
  Receive Date: 20121026
  Receipt Date: 20121026
  Transmission Date: 20130627
  Serious: Yes (Other)
  Sender: FDA-Public Use
  Company Number: DSA_60320_2012

PATIENT

DRUGS (6)
  1. FLUOROURACIL (FLUOROURACIL) [Suspect]
     Indication: GASTRIC CANCER
     Route: 040
  2. FLUOROURACIL (FLUOROURACIL) [Suspect]
     Indication: GASTRIC CANCER
     Route: 042
  3. EPIRUBICIN (EPIRUBICIN) (EPIRUBICIN) [Suspect]
     Indication: GASTRIC CANCER
     Route: 040
  4. CISPLATIN [Suspect]
     Indication: GASTRIC ULCER
     Route: 042
  5. LEUCOVORIN [Suspect]
     Indication: GASTRIC CANCER
     Route: 042
  6. GRANULOCYTE COLONY STIMULATING FACTOR [Concomitant]

REACTIONS (1)
  - Anaemia [None]
